FAERS Safety Report 19432747 (Version 1)
Quarter: 2021Q2

REPORT INFORMATION
  Report Type: Spontaneous
  Country: GB (occurrence: GB)
  Receive Date: 20210618
  Receipt Date: 20210618
  Transmission Date: 20210717
  Serious: Yes (Other)
  Sender: FDA-Public Use
  Company Number: GB-ORGANON-O2106GBR001416

PATIENT
  Age: 40 Year
  Sex: Female
  Weight: 67 kg

DRUGS (4)
  1. SALBUTAMOL [Concomitant]
     Active Substance: ALBUTEROL
     Dosage: 100MICROGRAMS/DOSE INHALER CFC FREE
     Route: 055
     Dates: start: 20210603
  2. MONTELUKAST SODIUM. [Suspect]
     Active Substance: MONTELUKAST SODIUM
     Dosage: AT NIGHT
     Route: 048
     Dates: start: 20200806, end: 20210212
  3. SPIRIVA [Concomitant]
     Active Substance: TIOTROPIUM BROMIDE MONOHYDRATE
     Dosage: 2.5MG/DOSE. PUFFS (INHALATION SOLUTION), CARTRIDGE WITH DEVICE
     Route: 055
     Dates: start: 20210412, end: 20210527
  4. ASTRAZENECA COVID?19 VACCINE [Concomitant]
     Active Substance: AZD-1222
     Indication: COVID-19 IMMUNISATION
     Dosage: 1 DOSAGE FORM
     Route: 030
     Dates: start: 20210330, end: 20210330

REACTIONS (5)
  - Eosinophilic granulomatosis with polyangiitis [Not Recovered/Not Resolved]
  - Mononeuropathy multiplex [Unknown]
  - Vasculitis [Unknown]
  - Polyneuropathy [Unknown]
  - Petechiae [Unknown]

NARRATIVE: CASE EVENT DATE: 20201015
